FAERS Safety Report 15482593 (Version 2)
Quarter: 2018Q4

REPORT INFORMATION
  Report Type: Spontaneous
  Country: JP (occurrence: JP)
  Receive Date: 20181010
  Receipt Date: 20181031
  Transmission Date: 20190205
  Serious: Yes (Hospitalization, Other)
  Sender: FDA-Public Use
  Company Number: JP-PFIZER INC-2018399938

PATIENT
  Age: 39 Year
  Sex: Female
  Weight: 52 kg

DRUGS (8)
  1. AZULFIDINE EN-TABS [Suspect]
     Active Substance: SULFASALAZINE
     Indication: SPONDYLITIS
     Dosage: 250 MG, 1X/DAY
     Route: 048
     Dates: start: 20180530, end: 20180721
  2. DOGMATYL [Concomitant]
     Active Substance: SULPIRIDE
     Dosage: UNK
  3. CALONAL [Concomitant]
     Active Substance: ACETAMINOPHEN
  4. BAYASPIRIN [Concomitant]
     Active Substance: ASPIRIN
  5. ACOFIDE [Concomitant]
     Active Substance: ACOTIAMIDE HYDROCHLORIDE
  6. LYRICA OD [Concomitant]
  7. HUMIRA [Suspect]
     Active Substance: ADALIMUMAB
     Indication: SPONDYLITIS
     Dosage: 40 MG, SINGLE
     Route: 058
     Dates: start: 20180711
  8. TAKECAB [Concomitant]
     Active Substance: VONOPRAZAN FUMURATE

REACTIONS (2)
  - Febrile neutropenia [Recovered/Resolved]
  - Product use in unapproved indication [Unknown]

NARRATIVE: CASE EVENT DATE: 20180530
